FAERS Safety Report 6341134-4 (Version None)
Quarter: 2009Q3

REPORT INFORMATION
  Report Type: 
  Country: None (occurrence: None)
  Receive Date: 20090904
  Receipt Date: 20090130
  Transmission Date: 20100115
  Serious: No
  Sender: FDA-Public Use
  Company Number: A0766152A

PATIENT
  Age: 57 Year
  Sex: Female

DRUGS (1)
  1. ROPINIROLE [Suspect]
     Indication: RESTLESS LEGS SYNDROME
     Dosage: 1MG FOUR TIMES PER DAY
     Route: 048
     Dates: start: 20081101, end: 20081101

REACTIONS (2)
  - FEELING JITTERY [None]
  - NERVOUSNESS [None]
